FAERS Safety Report 6006375-4 (Version None)
Quarter: 2008Q4

REPORT INFORMATION
  Report Type: 
  Country: None (occurrence: None)
  Receive Date: 20081217
  Receipt Date: 20081206
  Transmission Date: 20090506
  Serious: Yes (Other)
  Sender: FDA-Public Use
  Company Number: US-BAYER-200814799BCC

PATIENT
  Sex: Male

DRUGS (4)
  1. ALEVE [Suspect]
     Indication: SUICIDE ATTEMPT
     Dates: start: 20081206
  2. TYLENOL (CAPLET) [Suspect]
     Indication: SUICIDE ATTEMPT
  3. VIVARIN [Suspect]
     Indication: SUICIDE ATTEMPT
  4. ALCOHOL [Suspect]
     Indication: SUICIDE ATTEMPT

REACTIONS (1)
  - ABNORMAL BEHAVIOUR [None]
